FAERS Safety Report 8342835 (Version 5)
Quarter: 2012Q4

REPORT INFORMATION
  Report Type: 
  Country: US (occurrence: US)
  Receive Date: 20120119
  Receipt Date: 20120907
  Transmission Date: 20130627
  Serious: No
  Sender: FDA-Public Use
  Company Number: US-PFIZER INC-2012006470

PATIENT
  Age: 50 Year
  Sex: Female
  Weight: 90.7 kg

DRUGS (6)
  1. EFFEXOR XR [Suspect]
     Indication: DEPRESSION
     Dosage: 150mg in morning and 75mg at night
     Route: 048
  2. LIPITOR [Suspect]
     Dosage: UNK
  3. SYNTHROID [Concomitant]
     Indication: HYPOTHYROIDISM
     Dosage: UNK
  4. PREVACID [Concomitant]
     Dosage: UNK
  5. TIMOLOL [Concomitant]
     Dosage: UNK
  6. DEXTROSTAT [Concomitant]
     Dosage: UNK

REACTIONS (3)
  - Thinking abnormal [Recovered/Resolved]
  - Feeling abnormal [Unknown]
  - Malaise [Unknown]
